FAERS Safety Report 6353087-3 (Version None)
Quarter: 2009Q3

REPORT INFORMATION
  Report Type: 
  Country: None (occurrence: None)
  Receive Date: 20090912
  Receipt Date: 20090622
  Transmission Date: 20100115
  Serious: No
  Sender: FDA-Public Use
  Company Number: US-ABBOTT-08P-163-0452604-00

PATIENT
  Sex: Female
  Weight: 58.566 kg

DRUGS (6)
  1. HUMIRA [Suspect]
     Indication: COLITIS ULCERATIVE
     Route: 058
     Dates: start: 20080101
  2. HUMIRA [Suspect]
     Indication: CROHN'S DISEASE
  3. IRON [Concomitant]
     Indication: ANAEMIA
     Route: 048
     Dates: start: 20080401
  4. ASPIRIN [Concomitant]
     Indication: PROPHYLAXIS
     Route: 048
     Dates: start: 20070101
  5. COMPOUNDED THYROID [Concomitant]
     Indication: HYPOTHYROIDISM
     Route: 048
     Dates: start: 20040101
  6. UNSPECIFIED HRT [Concomitant]
     Indication: HYSTERECTOMY
     Dates: start: 20040101

REACTIONS (4)
  - DRUG DELIVERY SYSTEM MALFUNCTION [None]
  - INCORRECT DOSE ADMINISTERED [None]
  - INJECTION SITE HAEMORRHAGE [None]
  - INJECTION SITE IRRITATION [None]
